FAERS Safety Report 9223371 (Version 2)
Quarter: 2013Q2

REPORT INFORMATION
  Report Type: Spontaneous
  Country: US (occurrence: US)
  Receive Date: 20130410
  Receipt Date: 20130529
  Transmission Date: 20140414
  Serious: No
  Sender: FDA-Public Use
  Company Number: US-009507513-1304USA002789

PATIENT
  Age: 56 Year
  Sex: Male

DRUGS (4)
  1. ASMANEX TWISTHALER [Suspect]
     Indication: ASTHMA
     Dosage: 1 PUFF, ONCE A DAY
     Route: 055
     Dates: start: 201207, end: 201304
  2. SINGULAIR [Concomitant]
     Route: 048
  3. PROAIR (ALBUTEROL SULFATE) [Concomitant]
  4. PRILOSEC [Concomitant]
     Route: 048

REACTIONS (3)
  - Cough [Not Recovered/Not Resolved]
  - Wheezing [Not Recovered/Not Resolved]
  - Product quality issue [Unknown]
